FAERS Safety Report 8267847-5 (Version None)
Quarter: 2012Q2

REPORT INFORMATION
  Report Type: 
  Country: None (occurrence: None)
  Receive Date: 20120405
  Receipt Date: 20120405
  Transmission Date: 20120825
  Serious: Yes (Hospitalization)
  Sender: FDA-Public Use
  Company Number: None

PATIENT
  Age: 84 Year
  Sex: Female
  Weight: 60.8 kg

DRUGS (9)
  1. DILTIAZEM [Concomitant]
  2. THIAMINE HCL [Concomitant]
  3. RAMELTEON [Concomitant]
  4. LEVOTHYROXINE SODIUM [Concomitant]
  5. PRADAXA [Suspect]
     Indication: ATRIAL FIBRILLATION
     Dosage: 75MG BID PO CHRONIC
     Route: 048
  6. SERTRALINE HYDROCHLORIDE [Concomitant]
  7. DILTIAZEM HCL [Concomitant]
  8. AMBIEN [Concomitant]
  9. HCTZ/LOSARTAN [Concomitant]

REACTIONS (2)
  - NAUSEA [None]
  - BLOOD PRESSURE INCREASED [None]
